FAERS Safety Report 15562785 (Version 1)
Quarter: 2018Q4

REPORT INFORMATION
  Report Type: Spontaneous
  Country: US (occurrence: US)
  Receive Date: 20181029
  Receipt Date: 20181029
  Transmission Date: 20190205
  Serious: No
  Sender: FDA-Public Use
  Company Number: US-GILEAD-2018-0371117

PATIENT
  Age: 63 Year
  Sex: Male

DRUGS (8)
  1. TEMAZEPAM. [Concomitant]
     Active Substance: TEMAZEPAM
  2. TRIHEXYPHENIDYL HYDROCHLORID [Concomitant]
  3. HYDROCHLOROTHIAZIDE. [Concomitant]
     Active Substance: HYDROCHLOROTHIAZIDE
  4. ATIVAN [Concomitant]
     Active Substance: LORAZEPAM
  5. ZYPREXA [Concomitant]
     Active Substance: OLANZAPINE
  6. EPCLUSA [Suspect]
     Active Substance: SOFOSBUVIR\VELPATASVIR
     Indication: HEPATITIS C
     Dosage: 1 DF
     Route: 048
  7. ENALAPRIL MALEATE. [Concomitant]
     Active Substance: ENALAPRIL MALEATE
  8. FLUOCINONIDE. [Concomitant]
     Active Substance: FLUOCINONIDE

REACTIONS (3)
  - Insomnia [Unknown]
  - Headache [Not Recovered/Not Resolved]
  - Fatigue [Not Recovered/Not Resolved]
